FAERS Safety Report 8812679 (Version 2)
Quarter: 2012Q4

REPORT INFORMATION
  Report Type: 
  Country: US (occurrence: US)
  Receive Date: 20120927
  Receipt Date: 20121015
  Transmission Date: 20130627
  Serious: Yes (Death)
  Sender: FDA-Public Use
  Company Number: CHPA2012US020476

PATIENT
  Age: 87 Year
  Sex: Female

DRUGS (2)
  1. MYOFLEX ANALGESIC CREME [Suspect]
     Indication: BUNION
     Dosage: Unk, PROBABLY EVERY NIGHT
     Route: 061
  2. BC [Concomitant]
     Indication: HEADACHE
     Dosage: Unk, Unk

REACTIONS (2)
  - Cardiac failure [Fatal]
  - Off label use [Unknown]
